FAERS Safety Report 7884187-4 (Version None)
Quarter: 2011Q4

REPORT INFORMATION
  Report Type: 
  Country: None (occurrence: None)
  Receive Date: 20111102
  Receipt Date: 20111024
  Transmission Date: 20120403
  Serious: Yes (Hospitalization)
  Sender: FDA-Public Use
  Company Number: ES-VIIV HEALTHCARE LIMITED-B0759673A

PATIENT
  Age: 38 Year
  Sex: Male

DRUGS (1)
  1. ABACAVIR SULFATE AND LAMIVUDINE [Suspect]
     Indication: HIV INFECTION
     Route: 048
     Dates: start: 20110707, end: 20110715

REACTIONS (4)
  - COUGH [None]
  - RESPIRATORY DISTRESS [None]
  - ODYNOPHAGIA [None]
  - PYREXIA [None]
